FAERS Safety Report 7680383-X (Version None)
Quarter: 2011Q3

REPORT INFORMATION
  Report Type: 
  Country: None (occurrence: None)
  Receive Date: 20110812
  Receipt Date: 20110809
  Transmission Date: 20111222
  Serious: Yes (Other)
  Sender: FDA-Public Use
  Company Number: DE-VIIV HEALTHCARE LIMITED-D0072341A

PATIENT
  Sex: Male
  Weight: 100 kg

DRUGS (4)
  1. ABACAVIR SULFATE AND LAMIVUDINE [Suspect]
     Dosage: 900MG SEE DOSAGE TEXT
     Route: 048
     Dates: start: 20110809, end: 20110809
  2. ARCOXIA [Suspect]
     Dosage: 90MG SEE DOSAGE TEXT
     Route: 048
     Dates: start: 20110809, end: 20110809
  3. CITALOPRAM HYDROBROMIDE [Suspect]
     Dosage: 10MG SEE DOSAGE TEXT
     Route: 048
     Dates: start: 20110809, end: 20110809
  4. LORAZEPAM [Suspect]
     Dosage: 10MG PER DAY
     Route: 048
     Dates: start: 20110809, end: 20110809

REACTIONS (3)
  - SOMNOLENCE [None]
  - INTENTIONAL OVERDOSE [None]
  - SUICIDE ATTEMPT [None]
